FAERS Safety Report 24338390 (Version 1)
Quarter: 2024Q3

REPORT INFORMATION
  Report Type: Spontaneous
  Country: US (occurrence: US)
  Receive Date: 20240919
  Receipt Date: 20240919
  Transmission Date: 20241016
  Serious: No
  Sender: ALVOGEN
  Company Number: US-BMS-IMIDS-REMS_SI-11807962

PATIENT
  Sex: Female

DRUGS (1)
  1. LENALIDOMIDE [Suspect]
     Active Substance: LENALIDOMIDE
     Indication: Product used for unknown indication
     Dosage: COMPLETING 25 MG CYCLE AND WAS PLANNED TO REDUCE THE DOSE 15 MG DUE TO NEUTROPENIC PRECAUTIONS
     Dates: start: 20240625

REACTIONS (1)
  - Therapy interrupted [Unknown]

NARRATIVE: CASE EVENT DATE: 20240101
